FAERS Safety Report 4791233-3 (Version None)
Quarter: 2005Q4

REPORT INFORMATION
  Report Type: 
  Country: None (occurrence: None)
  Receive Date: 20051007
  Receipt Date: 20050715
  Transmission Date: 20060501
  Serious: Yes (Hospitalization)
  Sender: FDA-Public Use
  Company Number: US-BOEHRINGER INGELHEIM PHARMACEUTICALS, INC.-2005-BP-12052BP

PATIENT
  Sex: Male
  Weight: 68 kg

DRUGS (19)
  1. TIPRANAVIR / RITONAVIR CAPSULES [Suspect]
     Indication: HIV INFECTION
     Dosage: TPV/R 1000/400 MG
     Route: 048
     Dates: start: 20050412
  2. ABACAVIR [Suspect]
     Indication: HIV INFECTION
     Route: 048
     Dates: start: 20050703
  3. COMBIVIR [Concomitant]
     Indication: HIV INFECTION
     Route: 048
  4. FUZEON [Concomitant]
  5. ASPIRIN [Concomitant]
     Indication: PROPHYLAXIS
     Route: 048
  6. NORVASC [Concomitant]
     Indication: HYPERTENSION
     Route: 048
  7. BACTRIM DS [Concomitant]
  8. LABETOLOL [Concomitant]
  9. NITROGLYCERIN [Concomitant]
     Indication: CHEST PAIN
  10. ALBUTEROL [Concomitant]
     Indication: ASTHMA
     Route: 055
  11. ATROVENT [Concomitant]
     Indication: ASTHMA
     Route: 055
  12. FLOVENT [Concomitant]
     Indication: ASTHMA
     Route: 055
  13. MYCELEX [Concomitant]
     Indication: CANDIDIASIS
     Dosage: X5
     Route: 048
  14. AZITHROMYCIN [Concomitant]
     Indication: PROPHYLAXIS
     Route: 048
  15. AMBIEN [Concomitant]
     Indication: INSOMNIA
     Route: 048
  16. COMPAZINE [Concomitant]
     Indication: NAUSEA
     Route: 048
  17. VIAGRA [Concomitant]
     Indication: ERECTILE DYSFUNCTION
     Route: 048
  18. LAMIVUDINE [Concomitant]
     Indication: HIV INFECTION
     Route: 048
     Dates: start: 20050414
  19. ZIDOVUDINE [Concomitant]
     Route: 048
     Dates: start: 20050414, end: 20050701

REACTIONS (8)
  - ACCIDENTAL OVERDOSE [None]
  - ANAEMIA [None]
  - COUGH [None]
  - DIARRHOEA [None]
  - NAUSEA [None]
  - OEDEMA PERIPHERAL [None]
  - RENAL FAILURE ACUTE [None]
  - VOMITING [None]
